FAERS Safety Report 20764078 (Version 3)
Quarter: 2022Q2

REPORT INFORMATION
  Report Type: Report from Study
  Country: US (occurrence: US)
  Receive Date: 20220428
  Receipt Date: 20220625
  Transmission Date: 20220721
  Serious: Yes (Hospitalization, Other)
  Sender: FDA-Public Use
  Company Number: US-BRISTOL-MYERS SQUIBB COMPANY-2022-029477

PATIENT
  Age: 67 Year
  Sex: Male
  Weight: 81.9 kg

DRUGS (3)
  1. POMALIDOMIDE [Suspect]
     Active Substance: POMALIDOMIDE
     Indication: Plasma cell myeloma
     Dosage: 1-12 OF EACH 28-DAY CYCLE
     Route: 048
     Dates: start: 20211014, end: 20220323
  2. DARATUMUMAB [Suspect]
     Active Substance: DARATUMUMAB
     Indication: Plasma cell myeloma
     Dosage: CYCLE 1 +AMP; 2 WEEKLY; CYCLE 3 TO 6 BI-WEEKLY/Q2 WEEKS; CYCLE 7+ MONTHLY (1800 MG,1 IN 1 WK)
     Route: 058
     Dates: start: 20210914, end: 20220303
  3. TALQUETAMAB [Suspect]
     Active Substance: TALQUETAMAB
     Indication: Plasma cell myeloma
     Dosage: STEP-UP DOSE 1 - 10MCG/KG, ?STEP-UP DOSE 2 - 60MCG/KG,?STEP-UP DOSE 3 - 300MCG/KG,? STEP-UP DOSE 4 -
     Route: 058
     Dates: start: 20210915, end: 20220317

REACTIONS (2)
  - Metapneumovirus pneumonia [Recovering/Resolving]
  - Sinusitis [Recovering/Resolving]

NARRATIVE: CASE EVENT DATE: 20220326
